FAERS Safety Report 9925962 (Version 1)
Quarter: 2014Q1

REPORT INFORMATION
  Report Type: Spontaneous
  Country: US (occurrence: US)
  Receive Date: 20140226
  Receipt Date: 20140226
  Transmission Date: 20141002
  Serious: No
  Sender: FDA-Public Use
  Company Number: US-BRACCO-009739

PATIENT
  Age: 83 Year
  Sex: Male
  Weight: 91 kg

DRUGS (6)
  1. ZOCOR [Concomitant]
  2. CALCIUM [Concomitant]
  3. GLUCOSAMINE [Concomitant]
  4. ASA [Concomitant]
  5. ISOVUE 370 [Suspect]
     Indication: OESOPHAGRAM
     Route: 048
     Dates: start: 20130801, end: 20130801
  6. ZYRTEC [Concomitant]

REACTIONS (2)
  - Aspiration [Recovered/Resolved]
  - Dyspnoea [Recovered/Resolved]
